FAERS Safety Report 4772482-7 (Version None)
Quarter: 2005Q3

REPORT INFORMATION
  Report Type: 
  Country: None (occurrence: None)
  Receive Date: 20050916
  Receipt Date: 20050916
  Transmission Date: 20060218
  Serious: Yes (Other)
  Sender: FDA-Public Use
  Company Number: None

PATIENT
  Sex: Male
  Weight: 97.7 kg

DRUGS (1)
  1. METHYLPREDNISOLONE [Suspect]
     Indication: MULTIPLE SCLEROSIS
     Dosage: 1 GM IV QD X 3 DAYS
     Route: 042
     Dates: start: 20050914

REACTIONS (4)
  - ABNORMAL BEHAVIOUR [None]
  - ENERGY INCREASED [None]
  - EUPHORIC MOOD [None]
  - PERSONALITY CHANGE [None]
